FAERS Safety Report 9768061 (Version 2)
Quarter: 2014Q2

REPORT INFORMATION
  Report Type: Report from Study
  Country: US (occurrence: US)
  Receive Date: 20131217
  Receipt Date: 20140401
  Transmission Date: 20141212
  Serious: Yes (Other)
  Sender: FDA-Public Use
  Company Number: US-ABBVIE-13P-163-1179845-00

PATIENT
  Age: 49 Year
  Sex: Male
  Weight: 68.1 kg

DRUGS (4)
  1. CREON 24000 UNIT [Suspect]
     Indication: PANCREATECTOMY
     Dosage: 3 CAPS (24000 UNIT CAPSULE), WITH MEAL
     Route: 048
     Dates: start: 2011
  2. CREON 6000 UNIT [Suspect]
     Indication: PANCREATECTOMY
     Dosage: 3 CAPS (6000 UNIT CAPSULE), WITH MEALS
     Route: 048
     Dates: start: 200606, end: 2011
  3. NOVOLOG [Concomitant]
     Indication: PRODUCT USED FOR UNKNOWN INDICATION
  4. LANTUS [Concomitant]
     Indication: PRODUCT USED FOR UNKNOWN INDICATION
     Dosage: QHS

REACTIONS (5)
  - Osteoarthritis [Recovering/Resolving]
  - Diarrhoea [Recovered/Resolved]
  - Faeces discoloured [Recovered/Resolved]
  - Decreased appetite [Not Recovered/Not Resolved]
  - Weight decreased [Not Recovered/Not Resolved]
